FAERS Safety Report 5370191-7 (Version None)
Quarter: 2007Q2

REPORT INFORMATION
  Report Type: 
  Country: None (occurrence: None)
  Receive Date: 20070613
  Receipt Date: 20070503
  Transmission Date: 20071010
  Serious: No
  Sender: FDA-Public Use
  Company Number: IND-AE-07-SAN-023

PATIENT
  Age: 87 Year
  Sex: Female

DRUGS (6)
  1. SANCTURA [Suspect]
     Indication: POLLAKIURIA
     Dosage: 20 MG - BID - ORAL
     Route: 048
  2. SYNTHROID [Concomitant]
  3. AVAPRO [Concomitant]
  4. ZETIA [Concomitant]
  5. VESICARE [Concomitant]
  6. ACIPHEX [Concomitant]

REACTIONS (3)
  - DRUG INEFFECTIVE [None]
  - INSOMNIA [None]
  - POLLAKIURIA [None]
